FAERS Safety Report 7944402-5 (Version None)
Quarter: 2011Q4

REPORT INFORMATION
  Report Type: 
  Country: None (occurrence: None)
  Receive Date: 20111129
  Receipt Date: 20111121
  Transmission Date: 20120403
  Serious: No
  Sender: FDA-Public Use
  Company Number: US-BIOGENIDEC-2011BI044843

PATIENT
  Sex: Male

DRUGS (1)
  1. TYSABRI [Suspect]
     Indication: MULTIPLE SCLEROSIS
     Route: 042
     Dates: start: 20080211, end: 20110816

REACTIONS (4)
  - PERIPHERAL COLDNESS [None]
  - CENTRAL NERVOUS SYSTEM LESION [None]
  - SOMNOLENCE [None]
  - MULTIPLE SCLEROSIS [None]
